FAERS Safety Report 10048792 (Version 1)
Quarter: 2014Q1

REPORT INFORMATION
  Report Type: Spontaneous
  Country: GB (occurrence: GB)
  Receive Date: 20140331
  Receipt Date: 20140331
  Transmission Date: 20141002
  Serious: Yes (Other)
  Sender: FDA-Public Use
  Company Number: GB-TEVA-470104ISR

PATIENT
  Age: 72 Year
  Sex: Female
  Weight: 63.5 kg

DRUGS (5)
  1. CITALOPRAM [Suspect]
     Indication: HEADACHE
     Dosage: 10 MILLIGRAM DAILY;
     Dates: start: 20130521
  2. NORTRIPTYLINE [Suspect]
     Indication: HEADACHE
     Dosage: 10 MILLIGRAM DAILY; AT NIGHT. STOP DATE: 28 DAYS LATER (GRADUALLY).
     Dates: start: 20120706
  3. ADCAL-D3 [Concomitant]
     Indication: OSTEOPOROSIS
     Dates: start: 200905
  4. CYTACON [Concomitant]
     Indication: POST VIRAL FATIGUE SYNDROME
     Dosage: 50 MICROGRAM DAILY;
     Dates: start: 201111
  5. ALENDRONIC ACID [Concomitant]
     Indication: OSTEOPOROSIS
     Dates: start: 200905

REACTIONS (10)
  - Dry mouth [Recovered/Resolved]
  - Dry throat [Recovered/Resolved]
  - Insomnia [Recovered/Resolved]
  - Balance disorder [Recovered/Resolved]
  - Headache [Not Recovered/Not Resolved]
  - Anxiety [Recovered/Resolved]
  - Somnolence [Recovered/Resolved]
  - Dizziness [Recovered/Resolved]
  - Constipation [Recovered/Resolved]
  - Condition aggravated [Not Recovered/Not Resolved]
